FAERS Safety Report 10775678 (Version 3)
Quarter: 2015Q2

REPORT INFORMATION
  Report Type: Spontaneous
  Country: GR (occurrence: GR)
  Receive Date: 20150209
  Receipt Date: 20150413
  Transmission Date: 20150821
  Serious: Yes (Death, Hospitalization, Other)
  Sender: FDA-Public Use
  Company Number: GR-CELGENE-GRC-2015020112

PATIENT
  Age: 54 Year
  Sex: Female

DRUGS (4)
  1. AZACITIDINE INJECTABLE [Suspect]
     Active Substance: AZACITIDINE
     Route: 041
     Dates: start: 20130211
  2. AZACITIDINE INJECTABLE [Suspect]
     Active Substance: AZACITIDINE
     Route: 065
  3. AZACITIDINE INJECTABLE [Suspect]
     Active Substance: AZACITIDINE
     Indication: CHRONIC MYELOID LEUKAEMIA
     Route: 058
     Dates: start: 20130107
  4. AZACITIDINE INJECTABLE [Suspect]
     Active Substance: AZACITIDINE
     Route: 065
     Dates: start: 201304

REACTIONS (10)
  - Headache [Unknown]
  - Skin lesion [Unknown]
  - Haemoptysis [Unknown]
  - Haematemesis [Unknown]
  - Pyrexia [Unknown]
  - Respiratory failure [Fatal]
  - Haematochezia [Unknown]
  - Hepatic enzyme increased [Unknown]
  - Bacterial test positive [Unknown]
  - Tongue oedema [Unknown]

NARRATIVE: CASE EVENT DATE: 201301
